FAERS Safety Report 7644191-8 (Version None)
Quarter: 2011Q3

REPORT INFORMATION
  Report Type: 
  Country: None (occurrence: None)
  Receive Date: 20110729
  Receipt Date: 20110725
  Transmission Date: 20111222
  Serious: Yes (Other)
  Sender: FDA-Public Use
  Company Number: US-ABBOTT-11P-163-0841753-00

PATIENT
  Sex: Female
  Weight: 52.21 kg

DRUGS (7)
  1. METHOTREXATE [Concomitant]
     Indication: RHEUMATOID ARTHRITIS
  2. CYMBALTA [Concomitant]
     Indication: NEURALGIA
  3. PREDNISONE [Concomitant]
     Indication: RHEUMATOID ARTHRITIS
  4. OXYCODONE HCL [Concomitant]
     Indication: RHEUMATOID ARTHRITIS
  5. HUMIRA [Suspect]
     Indication: RHEUMATOID ARTHRITIS
     Dates: start: 20100101
  6. FOLIC ACID [Concomitant]
     Indication: VITAMIN SUPPLEMENTATION
  7. EXELON [Concomitant]
     Indication: PARKINSON'S DISEASE
     Dosage: PATCH
     Dates: start: 20110601

REACTIONS (1)
  - PARKINSON'S DISEASE [None]
